FAERS Safety Report 8558976-7 (Version None)
Quarter: 2012Q3

REPORT INFORMATION
  Report Type: 
  Country: None (occurrence: None)
  Receive Date: 20120802
  Receipt Date: 20120723
  Transmission Date: 20120928
  Serious: Yes (Other)
  Sender: FDA-Public Use
  Company Number: US-MSD-1207USA010703

PATIENT

DRUGS (1)
  1. ZOCOR [Suspect]
     Dosage: 40 MG, QD
     Route: 048

REACTIONS (4)
  - PAIN IN EXTREMITY [None]
  - ARTHRALGIA [None]
  - BACK DISORDER [None]
  - MUSCULOSKELETAL PAIN [None]
